FAERS Safety Report 6483035-7 (Version None)
Quarter: 2009Q4

REPORT INFORMATION
  Report Type: 
  Country: None (occurrence: None)
  Receive Date: 20091209
  Receipt Date: 20091031
  Transmission Date: 20100525
  Serious: No
  Sender: FDA-Public Use
  Company Number: US-AMGEN-KDL372328

PATIENT
  Sex: Male

DRUGS (1)
  1. ENBREL [Suspect]
     Indication: ANKYLOSING SPONDYLITIS
     Route: 058
     Dates: start: 20091010

REACTIONS (4)
  - CHILLS [None]
  - INCREASED UPPER AIRWAY SECRETION [None]
  - MALAISE [None]
  - RESPIRATORY TRACT CONGESTION [None]
